FAERS Safety Report 8832548 (Version 3)
Quarter: 2013Q3

REPORT INFORMATION
  Report Type: Spontaneous
  Country: JP (occurrence: JP)
  Receive Date: 20121010
  Receipt Date: 20130930
  Transmission Date: 20140515
  Serious: Yes (Life-Threatening, Other)
  Sender: FDA-Public Use
  Company Number: JP-009507513-1210JPN000078

PATIENT
  Age: 68 Year
  Sex: Female

DRUGS (7)
  1. ESLAX INTRAVENOUS 25MG/2.5ML [Suspect]
     Indication: NEUROMUSCULAR BLOCKING THERAPY
     Dosage: 0.35 MG/KG, QD, DIVIDED DOSE FREQUENCY UNKNOWN
     Route: 042
  2. BRIDION [Suspect]
     Indication: NEUROMUSCULAR BLOCKADE REVERSAL
     Dosage: 3.5 MG/KG, QD, DIVIDED DOSE FREQUENCY UNKNOWN
     Route: 042
  3. MIDAZOLAM [Concomitant]
     Indication: ANAESTHESIA PROCEDURE
     Dosage: DAILY DOSE UNKNOWN
     Route: 042
  4. FENTANYL [Concomitant]
     Indication: ANAESTHESIA PROCEDURE
     Dosage: DAILY DOSE UNKNOWN
     Route: 065
  5. SEVOFLURANE [Concomitant]
     Indication: MAINTENANCE OF ANAESTHESIA
     Dosage: DAILY DOSE UNKNOWN
     Route: 055
  6. HORMONES (UNSPECIFIED) [Concomitant]
     Indication: MYASTHENIA GRAVIS
     Dosage: DAILY DOSE UNKNOWN, FORMULATION: POR
     Route: 048
  7. AUTONOMIC AGENTS [Concomitant]
     Indication: MYASTHENIA GRAVIS
     Route: 048

REACTIONS (2)
  - Respiratory failure [Recovering/Resolving]
  - Neuromuscular block prolonged [Unknown]
